FAERS Safety Report 8432878-9 (Version None)
Quarter: 2012Q2

REPORT INFORMATION
  Report Type: 
  Country: None (occurrence: None)
  Receive Date: 20120613
  Receipt Date: 20120604
  Transmission Date: 20120825
  Serious: Yes (Hospitalization, Other)
  Sender: FDA-Public Use
  Company Number: CA-ROCHE-1023220

PATIENT
  Sex: Male

DRUGS (2)
  1. XOLAIR [Suspect]
     Indication: ASTHMA
     Route: 058
     Dates: start: 20101213
  2. XOLAIR [Suspect]
     Route: 058
     Dates: start: 20111114

REACTIONS (3)
  - ABDOMINAL PAIN [None]
  - GASTRIC CANCER [None]
  - PYREXIA [None]
